FAERS Safety Report 23491851 (Version 2)
Quarter: 2025Q1

REPORT INFORMATION
  Report Type: Report from Study
  Country: US (occurrence: US)
  Receive Date: 20240207
  Receipt Date: 20250115
  Transmission Date: 20250409
  Serious: No
  Sender: HRA PHARMA
  Company Number: US-ORG100014127-2023001035

PATIENT
  Age: 58 Year
  Sex: Female

DRUGS (23)
  1. LYSODREN [Suspect]
     Active Substance: MITOTANE
     Indication: Adrenal gland cancer
     Dosage: TAKE 1 TABLET 2 TIMES A DAY
     Route: 048
     Dates: start: 20230722
  2. LYSODREN [Suspect]
     Active Substance: MITOTANE
     Indication: Adrenal gland cancer
     Dates: end: 2024
  3. nivestym injection 480/0.8 [Concomitant]
     Indication: Product used for unknown indication
  4. ONDANSETRON Tablet 8MG [Concomitant]
     Indication: Product used for unknown indication
  5. Acetaminophen Tab 500 mg [Concomitant]
     Indication: Product used for unknown indication
  6. Atenolol tab 25 mg [Concomitant]
     Indication: Product used for unknown indication
  7. Bisacodyl Tab 5mg [Concomitant]
     Indication: Product used for unknown indication
  8. Cisplatin Powder [Concomitant]
     Indication: Product used for unknown indication
  9. Cortef Tab 5 mg [Concomitant]
     Indication: Product used for unknown indication
  10. Doxorubicin Inj 10/5ml, [Concomitant]
     Indication: Product used for unknown indication
  11. Etoposide powder [Concomitant]
     Indication: Product used for unknown indication
  12. Famotidine tab 20 mg [Concomitant]
     Indication: Product used for unknown indication
  13. Hydromorphon Tab 2 mg [Concomitant]
     Indication: Product used for unknown indication
  14. Keytruda inj 100mg/4m [Concomitant]
     Indication: Product used for unknown indication
  15. Lactulose sol 10g [Concomitant]
     Indication: Product used for unknown indication
  16. Lisinopril tab 40 mg [Concomitant]
     Indication: Product used for unknown indication
  17. Lopermide capsule 2mg [Concomitant]
     Indication: Product used for unknown indication
  18. Marinol Cap 2.5mg [Concomitant]
     Indication: Product used for unknown indication
  19. Mirtazapine tab 15mg [Concomitant]
     Indication: Product used for unknown indication
  20. Narcan SPR 4mg [Concomitant]
     Indication: Product used for unknown indication
  21. Olanzepine Tab 10mg [Concomitant]
     Indication: Product used for unknown indication
  22. Prochlorperazine Tab 10mg [Concomitant]
     Indication: Product used for unknown indication
  23. Osmolite 1.5 liq [Concomitant]
     Indication: Product used for unknown indication

REACTIONS (2)
  - Feeling cold [Unknown]
  - Paraesthesia [Unknown]

NARRATIVE: CASE EVENT DATE: 20230901
